FAERS Safety Report 4337662-3 (Version None)
Quarter: 2004Q2

REPORT INFORMATION
  Report Type: 
  Country: None (occurrence: None)
  Receive Date: 20040412
  Receipt Date: 20040412
  Transmission Date: 20050107
  Serious: Yes (Other)
  Sender: FDA-Public Use
  Company Number: None

PATIENT
  Age: 55 Year
  Sex: Female
  Weight: 56.6996 kg

DRUGS (3)
  1. ZOLOFT [Suspect]
     Indication: ANGER
     Dosage: 1 DAY ORAL
     Route: 048
     Dates: start: 20030801, end: 20040401
  2. ZOLOFT [Suspect]
     Indication: ANXIETY
     Dosage: 1 DAY ORAL
     Route: 048
     Dates: start: 20030801, end: 20040401
  3. ZOLOFT [Suspect]
     Indication: STRESS SYMPTOMS
     Dosage: 1 DAY ORAL
     Route: 048
     Dates: start: 20030801, end: 20040401

REACTIONS (4)
  - ABNORMAL DREAMS [None]
  - AGITATION [None]
  - DIZZINESS [None]
  - PARAESTHESIA [None]
